FAERS Safety Report 21751645 (Version 1)
Quarter: 2022Q4

REPORT INFORMATION
  Report Type: Spontaneous
  Country: FR (occurrence: FR)
  Receive Date: 20221220
  Receipt Date: 20221220
  Transmission Date: 20230113
  Serious: Yes (Other)
  Sender: FDA-Public Use
  Company Number: None

PATIENT
  Age: 57 Year
  Sex: Male

DRUGS (3)
  1. ROCURONIUM [Suspect]
     Active Substance: ROCURONIUM BROMIDE
     Indication: General anaesthesia
     Route: 042
     Dates: start: 20201016, end: 20201016
  2. CEFAZOLIN SODIUM [Suspect]
     Active Substance: CEFAZOLIN SODIUM
     Indication: General anaesthesia
     Route: 065
     Dates: start: 20201016, end: 20201016
  3. THIOPENTAL SODIUM [Suspect]
     Active Substance: THIOPENTAL SODIUM
     Indication: General anaesthesia
     Route: 065
     Dates: start: 20201016, end: 20201016

REACTIONS (1)
  - Allergy test negative [Recovered/Resolved]

NARRATIVE: CASE EVENT DATE: 20201016
